FAERS Safety Report 15170518 (Version 2)
Quarter: 2018Q3

REPORT INFORMATION
  Report Type: Spontaneous
  Country: JP (occurrence: JP)
  Receive Date: 20180720
  Receipt Date: 20180905
  Transmission Date: 20181010
  Serious: Yes (Death, Disabling, Other)
  Sender: FDA-Public Use
  Company Number: JP-ROCHE-2155944

PATIENT
  Age: 70 Year
  Sex: Male
  Weight: 66 kg

DRUGS (6)
  1. CARBOPLATIN. [Suspect]
     Active Substance: CARBOPLATIN
     Indication: LUNG ADENOCARCINOMA
     Route: 041
     Dates: start: 20180514, end: 20180611
  2. ALIMTA [Suspect]
     Active Substance: PEMETREXED DISODIUM
     Indication: LUNG ADENOCARCINOMA
     Route: 041
     Dates: start: 20180514, end: 20180614
  3. AZILVA [Concomitant]
     Active Substance: AZILSARTAN KAMEDOXOMIL
     Dosage: AFTER THE BREAKFAST
     Route: 048
     Dates: start: 20180525
  4. AVASTIN [Suspect]
     Active Substance: BEVACIZUMAB
     Indication: LUNG ADENOCARCINOMA
     Route: 041
     Dates: start: 20180514, end: 20180614
  5. AMLODIPINE [Concomitant]
     Active Substance: AMLODIPINE BESYLATE
     Dosage: AFTER BREAKFAST
     Route: 048
     Dates: start: 20180525
  6. ZACRAS [Concomitant]
     Active Substance: AMLODIPINE BESYLATE\AZILSARTAN
     Indication: HYPERTENSION
     Route: 048

REACTIONS (4)
  - Peripheral arterial occlusive disease [Unknown]
  - Deep vein thrombosis [Unknown]
  - Lung adenocarcinoma [Fatal]
  - Cerebral artery embolism [Not Recovered/Not Resolved]

NARRATIVE: CASE EVENT DATE: 20180612
